FAERS Safety Report 6750982-8 (Version None)
Quarter: 2010Q2

REPORT INFORMATION
  Report Type: 
  Country: None (occurrence: None)
  Receive Date: 20100526
  Receipt Date: 20080623
  Transmission Date: 20101027
  Serious: Yes (Hospitalization)
  Sender: FDA-Public Use
  Company Number: LEO-2010-00425

PATIENT
  Sex: Female
  Weight: 2.52 kg

DRUGS (6)
  1. INNOHEP [Suspect]
     Indication: DRUG EXPOSURE DURING PREGNANCY
     Dosage: TRANSPLACENTAL
     Route: 064
     Dates: start: 20050801, end: 20060316
  2. ASPIRIN (ACETYLSALICYLIC AC1D) [Concomitant]
  3. FOLIC ACID [Concomitant]
  4. VENLAFAXINE HCL [Concomitant]
  5. BETAMETHASONE [Concomitant]
  6. FERROUS SULFATE TAB [Concomitant]

REACTIONS (2)
  - MATERNAL DRUGS AFFECTING FOETUS [None]
  - PREMATURE BABY [None]
